FAERS Safety Report 16246452 (Version 2)
Quarter: 2019Q2

REPORT INFORMATION
  Report Type: Report from Study
  Country: None (occurrence: US)
  Receive Date: 20190427
  Receipt Date: 20190614
  Transmission Date: 20190711
  Serious: Yes (Other)
  Sender: FDA-Public Use
  Company Number: US-ABBVIE-19S-163-2754999-00

PATIENT
  Age: 68 Year
  Sex: Female

DRUGS (1)
  1. CREON [Suspect]
     Active Substance: PANCRELIPASE AMYLASE\PANCRELIPASE LIPASE\PANCRELIPASE PROTEASE
     Indication: PRODUCT USED FOR UNKNOWN INDICATION
     Route: 048

REACTIONS (13)
  - Hypertension [Unknown]
  - Pancreatitis [Unknown]
  - Spinal operation [Unknown]
  - Irritable bowel syndrome [Unknown]
  - Diarrhoea [Not Recovered/Not Resolved]
  - Knee arthroplasty [Unknown]
  - Cholecystectomy [Unknown]
  - Hysterectomy [Unknown]
  - Pancreatic failure [Not Recovered/Not Resolved]
  - Ulcer [Unknown]
  - Cardiac failure congestive [Unknown]
  - Ulcer [Unknown]
  - Gastrooesophageal reflux disease [Unknown]

NARRATIVE: CASE EVENT DATE: 20110223
